FAERS Safety Report 8958068 (Version 2)
Quarter: 2013Q1

REPORT INFORMATION
  Report Type: Spontaneous
  Country: US (occurrence: US)
  Receive Date: 20121211
  Receipt Date: 20130325
  Transmission Date: 20140127
  Serious: No
  Sender: FDA-Public Use
  Company Number: US-BIOGENIDEC-2012BI058558

PATIENT
  Age: 49 Year
  Sex: Female

DRUGS (2)
  1. TYSABRI [Suspect]
     Indication: MULTIPLE SCLEROSIS
     Route: 042
     Dates: start: 20120831
  2. BENADRYL [Concomitant]
     Indication: PREMEDICATION

REACTIONS (6)
  - Eye disorder [Not Recovered/Not Resolved]
  - Tooth extraction [Recovered/Resolved]
  - Feeling abnormal [Not Recovered/Not Resolved]
  - Influenza [Recovered/Resolved]
  - Gastroenteritis viral [Not Recovered/Not Resolved]
  - Tooth abscess [Recovered/Resolved]
